FAERS Safety Report 18765227 (Version 6)
Quarter: 2021Q2

REPORT INFORMATION
  Report Type: Report from Study
  Country: CN (occurrence: CN)
  Receive Date: 20210120
  Receipt Date: 20210615
  Transmission Date: 20210717
  Serious: Yes (Death, Hospitalization, Other)
  Sender: FDA-Public Use
  Company Number: CN-TAKEDA-2021TUS001076

PATIENT
  Age: 66 Year
  Sex: Female

DRUGS (8)
  1. OMEPRAZOLE. [Concomitant]
     Active Substance: OMEPRAZOLE
     Dosage: 20 MILLIGRAM, QOD
     Route: 048
     Dates: start: 20200825, end: 20210104
  2. METHYLPREDNISOLONE. [Concomitant]
     Active Substance: METHYLPREDNISOLONE
     Dosage: 4 MILLIGRAM, QOD
     Route: 048
     Dates: start: 20200825, end: 20210104
  3. RIVAROXABAN [Concomitant]
     Active Substance: RIVAROXABAN
     Dosage: 10 MILLIGRAM, QOD
     Route: 048
     Dates: start: 20201026
  4. POTASSIUM CHLORIDE. [Concomitant]
     Active Substance: POTASSIUM CHLORIDE
     Dosage: 250 MILLIGRAM, TID
     Route: 048
     Dates: start: 20201026
  5. IXAZOMIB [Suspect]
     Active Substance: IXAZOMIB
     Indication: PRODUCT USED FOR UNKNOWN INDICATION
     Dosage: 4 MILLIGRAM, 1/WEEK
     Route: 048
     Dates: start: 20200902, end: 20210219
  6. ATORVASTATIN CALCIUM. [Concomitant]
     Active Substance: ATORVASTATIN CALCIUM
     Dosage: 20 MILLIGRAM, QOD
     Route: 048
     Dates: start: 20200928
  7. BENZBROMARONE [Concomitant]
     Active Substance: BENZBROMARONE
     Dosage: 50 MILLIGRAM, QOD
     Route: 048
     Dates: start: 20200825, end: 20210104
  8. ONDANSETRON HYDROCHLORIDE. [Concomitant]
     Active Substance: ONDANSETRON HYDROCHLORIDE
     Dosage: 4 MILLIGRAM, 1/WEEK
     Route: 048
     Dates: start: 20200902, end: 20210104

REACTIONS (6)
  - Cerebral infarction [Fatal]
  - Neutrophil count increased [Not Recovered/Not Resolved]
  - Blood bilirubin increased [Recovered/Resolved]
  - Blood bilirubin unconjugated increased [Recovered/Resolved]
  - Foot fracture [Recovering/Resolving]
  - Cardiac failure [Fatal]

NARRATIVE: CASE EVENT DATE: 20201019
